FAERS Safety Report 9793187 (Version 2)
Quarter: 2014Q1

REPORT INFORMATION
  Report Type: Spontaneous
  Country: CN (occurrence: CN)
  Receive Date: 20140102
  Receipt Date: 20140109
  Transmission Date: 20141002
  Serious: Yes (Other)
  Sender: FDA-Public Use
  Company Number: CN-SA-2013SA135491

PATIENT
  Age: 39 Year
  Sex: Female

DRUGS (8)
  1. DOCETAXEL [Suspect]
     Indication: BREAST CANCER
     Route: 065
  2. DEXAMETHASONE [Concomitant]
     Indication: BREAST CANCER
     Route: 048
  3. PIRARUBICIN [Concomitant]
     Indication: BREAST CANCER
  4. PIRARUBICIN [Concomitant]
     Indication: BREAST CANCER
  5. CYCLOPHOSPHAMIDE [Concomitant]
     Indication: BREAST CANCER
  6. ANTIEMETICS AND ANTINAUSEANTS [Concomitant]
     Indication: BREAST CANCER
  7. CEFATRIZINE [Concomitant]
     Indication: INFECTION PROPHYLAXIS
  8. TRANEXAMIC ACID [Concomitant]
     Indication: HAEMOSTASIS

REACTIONS (7)
  - Mental disorder [Recovered/Resolved]
  - Fear [Recovered/Resolved]
  - Eye disorder [Unknown]
  - Insomnia [Unknown]
  - Dizziness [Unknown]
  - Fatigue [Unknown]
  - Nausea [Unknown]
